FAERS Safety Report 6473384-0 (Version None)
Quarter: 2009Q4

REPORT INFORMATION
  Report Type: 
  Country: None (occurrence: None)
  Receive Date: 20091204
  Receipt Date: 20081210
  Transmission Date: 20100525
  Serious: Yes (Other)
  Sender: FDA-Public Use
  Company Number: JP-ELI_LILLY_AND_COMPANY-JP200812002889

PATIENT
  Sex: Female

DRUGS (2)
  1. GEMZAR [Suspect]
     Indication: UTERINE LEIOMYOSARCOMA
     Dosage: UNK, UNK
     Route: 042
  2. DOCETAXEL [Concomitant]
     Indication: UTERINE LEIOMYOSARCOMA
     Dosage: UNK, UNK
     Route: 042

REACTIONS (2)
  - NEUTROPHIL COUNT DECREASED [None]
  - PYOMETRA [None]
